FAERS Safety Report 9059706 (Version 1)
Quarter: 2013Q1

REPORT INFORMATION
  Report Type: Report from Study
  Country: US (occurrence: US)
  Receive Date: 20130211
  Receipt Date: 20130211
  Transmission Date: 20140127
  Serious: Yes (Hospitalization, Other)
  Sender: FDA-Public Use
  Company Number: US-ABBOTT-13P-163-1045287-00

PATIENT
  Age: 47 Year
  Sex: Female

DRUGS (12)
  1. HUMIRA [Suspect]
     Indication: CROHN^S DISEASE
     Route: 058
     Dates: start: 2009, end: 2011
  2. HUMIRA [Suspect]
     Route: 058
     Dates: start: 2012
  3. EFFEXOR [Concomitant]
     Indication: DEPRESSION
  4. METHOTREXATE [Concomitant]
     Indication: ARTHRALGIA
  5. XANAX [Concomitant]
     Indication: ANXIETY
  6. METOPROLOL [Concomitant]
     Indication: HYPERTENSION
  7. RANITIDINE [Concomitant]
     Indication: DYSPEPSIA
  8. RANITIDINE [Concomitant]
     Indication: GASTROOESOPHAGEAL REFLUX DISEASE
  9. MIRAPEX [Concomitant]
     Indication: MUSCLE SPASMS
     Dosage: DAILY
  10. LOSARTAN [Concomitant]
     Indication: BLOOD PRESSURE INCREASED
     Dosage: DAILY
  11. IMITREX [Concomitant]
     Indication: MIGRAINE
  12. CARDIZEM [Concomitant]
     Indication: BLOOD PRESSURE INCREASED

REACTIONS (16)
  - Gastrointestinal inflammation [Not Recovered/Not Resolved]
  - Small intestinal obstruction [Not Recovered/Not Resolved]
  - Abscess intestinal [Not Recovered/Not Resolved]
  - Gastrointestinal stoma complication [Unknown]
  - Intestinal obstruction [Recovered/Resolved]
  - Intestinal obstruction [Recovered/Resolved]
  - Arthritis [Unknown]
  - Depression [Unknown]
  - Anxiety [Unknown]
  - Migraine [Unknown]
  - Blood pressure increased [Unknown]
  - Type 2 diabetes mellitus [Unknown]
  - Arthralgia [Unknown]
  - Pain in extremity [Unknown]
  - Back pain [Unknown]
  - Intervertebral disc protrusion [Unknown]
